FAERS Safety Report 20422066 (Version 1)
Quarter: 2022Q1

REPORT INFORMATION
  Report Type: Report from Study
  Country: PL (occurrence: PL)
  Receive Date: 20220203
  Receipt Date: 20220203
  Transmission Date: 20220423
  Serious: Yes (Death, Hospitalization, Other)
  Sender: FDA-Public Use
  Company Number: PL-BAYER-2022A015438

PATIENT
  Age: 65 Year
  Sex: Male

DRUGS (1)
  1. VENTAVIS [Suspect]
     Active Substance: ILOPROST
     Indication: Pulmonary arterial hypertension
     Dosage: 2.5 UG, 6ID
     Route: 055
     Dates: start: 20210414, end: 20220123

REACTIONS (5)
  - COVID-19 [Fatal]
  - Hospitalisation [Unknown]
  - General physical health deterioration [Unknown]
  - Adverse reaction [Unknown]
  - Inappropriate schedule of product administration [Unknown]
